FAERS Safety Report 7802670-4 (Version None)
Quarter: 2011Q4

REPORT INFORMATION
  Report Type: 
  Country: None (occurrence: None)
  Receive Date: 20111007
  Receipt Date: 20110929
  Transmission Date: 20120403
  Serious: Yes (Other)
  Sender: FDA-Public Use
  Company Number: PHHY2011AR86693

PATIENT
  Sex: Female

DRUGS (1)
  1. LAMISIL [Suspect]
     Indication: ONYCHOMYCOSIS
     Route: 048

REACTIONS (5)
  - ERYTHEMA [None]
  - SKIN IRRITATION [None]
  - INFLAMMATION [None]
  - RASH [None]
  - DYSURIA [None]
